FAERS Safety Report 18595105 (Version 2)
Quarter: 2020Q4

REPORT INFORMATION
  Report Type: Spontaneous
  Country: PK (occurrence: PK)
  Receive Date: 20201209
  Receipt Date: 20201223
  Transmission Date: 20210114
  Serious: Yes (Hospitalization, Other)
  Sender: FDA-Public Use
  Company Number: PK-NOVOPROD-771481

PATIENT
  Age: 80 Year
  Sex: Female
  Weight: 60 kg

DRUGS (2)
  1. NOVOMIX 50 FLEXPEN [Suspect]
     Active Substance: INSULIN ASPART
     Dosage: 20+ 30 UNITS (RESTART)
     Route: 058
     Dates: start: 20201102
  2. NOVOMIX 50 FLEXPEN [Suspect]
     Active Substance: INSULIN ASPART
     Indication: TYPE 2 DIABETES MELLITUS
     Dosage: UNK
     Route: 065
     Dates: start: 20110101

REACTIONS (3)
  - Malaise [Recovered/Resolved]
  - Cerebrovascular accident [Recovered/Resolved]
  - Diarrhoea [Recovered/Resolved]

NARRATIVE: CASE EVENT DATE: 20201008
